FAERS Safety Report 18275702 (Version 3)
Quarter: 2023Q1

REPORT INFORMATION
  Report Type: Spontaneous
  Country: DE (occurrence: DE)
  Receive Date: 20200916
  Receipt Date: 20230119
  Transmission Date: 20230418
  Serious: Yes (Hospitalization)
  Sender: FDA-Public Use
  Company Number: DE-ANIPHARMA-2020-DE-000201

PATIENT
  Age: 84 Year
  Sex: Female
  Weight: 70 kg

DRUGS (5)
  1. CANDESARTAN CILEXETIL [Suspect]
     Active Substance: CANDESARTAN CILEXETIL
     Indication: Product used for unknown indication
     Dosage: 16 MG BID / 32 MG DAILY
     Route: 048
  2. METOPROLOL [Suspect]
     Active Substance: METOPROLOL
     Dosage: 95 MG DAILY / 47.5 MG DAILY
     Route: 048
  3. SIMVASTATIN [Concomitant]
     Active Substance: SIMVASTATIN
     Dosage: 20 MG, 0-0-1-0
     Route: 048
  4. EDOXABAN TOSYLATE [Suspect]
     Active Substance: EDOXABAN TOSYLATE
     Dosage: 60 MG BID/ 120 MG DAILY
     Route: 048
  5. CITALOPRAM [Suspect]
     Active Substance: CITALOPRAM HYDROBROMIDE
     Route: 065

REACTIONS (5)
  - Wound [Recovering/Resolving]
  - General physical health deterioration [Recovering/Resolving]
  - Inflammation [Recovering/Resolving]
  - Localised infection [Recovering/Resolving]
  - Syncope [Recovering/Resolving]
